FAERS Safety Report 13516659 (Version 1)
Quarter: 2017Q2

REPORT INFORMATION
  Report Type: Spontaneous
  Country: US (occurrence: US)
  Receive Date: 20170504
  Receipt Date: 20170504
  Transmission Date: 20170830
  Serious: No
  Sender: FDA-Public Use
  Company Number: None

PATIENT
  Age: 31 Year
  Sex: Male
  Weight: 118 kg

DRUGS (2)
  1. GLUCOLIGHT XR 500MG TAB [Suspect]
     Active Substance: METFORMIN HYDROCHLORIDE
     Indication: HEPATIC STEATOSIS
     Dosage: ?          QUANTITY:30 TABLET(S);?
     Route: 048
     Dates: start: 20170201, end: 20170504
  2. GLUCOLIGHT XR 500MG TAB [Suspect]
     Active Substance: METFORMIN HYDROCHLORIDE
     Indication: OVERWEIGHT
     Dosage: ?          QUANTITY:30 TABLET(S);?
     Route: 048
     Dates: start: 20170201, end: 20170504

REACTIONS (1)
  - Product physical issue [None]

NARRATIVE: CASE EVENT DATE: 20170501
